FAERS Safety Report 10753850 (Version 1)
Quarter: 2015Q1

REPORT INFORMATION
  Report Type: Report from Study
  Country: FR (occurrence: FR)
  Receive Date: 20150202
  Receipt Date: 20150202
  Transmission Date: 20150721
  Serious: Yes (Hospitalization)
  Sender: FDA-Public Use
  Company Number: FR-ROCHE-1162573

PATIENT
  Age: 63 Year
  Sex: Female

DRUGS (15)
  1. XANAX [Concomitant]
     Active Substance: ALPRAZOLAM
  2. CALTRATE [Concomitant]
     Active Substance: CALCIUM CARBONATE
  3. ETIOVEN [Concomitant]
     Active Substance: NAFTAZONE
  4. INEXIUM [Concomitant]
     Active Substance: ESOMEPRAZOLE
  5. SKENAN [Concomitant]
     Active Substance: MORPHINE SULFATE
  6. ZOLOFT [Concomitant]
     Active Substance: SERTRALINE HYDROCHLORIDE
  7. STILNOX [Concomitant]
     Active Substance: ZOLPIDEM TARTRATE
  8. SMECTA [Concomitant]
     Active Substance: MONTMORILLONITE
  9. HYDROXYCHLOROQUINE [Concomitant]
     Active Substance: HYDROXYCHLOROQUINE
  10. METHOTREXATE [Concomitant]
     Active Substance: METHOTREXATE
  11. ULTRALEVURE [Concomitant]
     Active Substance: SACCHAROMYCES CEREVISIAE
  12. COLCHIMAX (FRANCE) [Concomitant]
  13. RITUXIMAB [Suspect]
     Active Substance: RITUXIMAB
     Indication: RHEUMATOID ARTHRITIS
     Dosage: D15 INFUSION ON 05/OCT/2007
     Route: 042
     Dates: start: 20070921, end: 20080331
  14. ETANERCEPT [Concomitant]
     Active Substance: ETANERCEPT
     Dosage: STOPPED AFTER 4 MONTHS UPON PATIENT^S REQUEST DUE TO MODERATE EFFICACY
     Route: 065
  15. ACTONEL [Concomitant]
     Active Substance: RISEDRONATE SODIUM

REACTIONS (4)
  - Wound infection [Recovered/Resolved with Sequelae]
  - Abscess bacterial [Recovered/Resolved with Sequelae]
  - Tenosynovitis [Not Recovered/Not Resolved]
  - Lung infection [Not Recovered/Not Resolved]

NARRATIVE: CASE EVENT DATE: 200710
